FAERS Safety Report 22659464 (Version 1)
Quarter: 2023Q2

REPORT INFORMATION
  Report Type: Spontaneous
  Country: JP (occurrence: JP)
  Receive Date: 20230630
  Receipt Date: 20230630
  Transmission Date: 20230722
  Serious: Yes (Death, Hospitalization)
  Sender: FDA-Public Use
  Company Number: JP-drreddys-LIT/JAP/23/0169082

PATIENT
  Age: 62 Year
  Sex: Male

DRUGS (1)
  1. AZACITIDINE [Suspect]
     Active Substance: AZACITIDINE
     Indication: Myelodysplastic syndrome

REACTIONS (4)
  - Acute interstitial pneumonitis [Fatal]
  - Idiopathic pneumonia syndrome [Unknown]
  - Rhinovirus infection [Unknown]
  - Enterovirus infection [Unknown]
